FAERS Safety Report 26059489 (Version 1)
Quarter: 2025Q4

REPORT INFORMATION
  Report Type: Spontaneous
  Country: US (occurrence: US)
  Receive Date: 20251118
  Receipt Date: 20251118
  Transmission Date: 20260118
  Serious: Yes (Other)
  Sender: DR REDDYS
  Company Number: US-DRL-USA-USA/2025/11/017256

PATIENT
  Age: 16 Year
  Sex: Male

DRUGS (2)
  1. DOXORUBICIN [Suspect]
     Active Substance: DOXORUBICIN
     Indication: Extragonadal primary germ cell tumour
     Dosage: ONE CYCLE
  2. IFOSFAMIDE [Suspect]
     Active Substance: IFOSFAMIDE
     Indication: Extragonadal primary germ cell tumour
     Dosage: ONE CYCLE

REACTIONS (2)
  - Necrosis [Unknown]
  - Product use in unapproved indication [Unknown]
